FAERS Safety Report 24548606 (Version 1)
Quarter: 2024Q4

REPORT INFORMATION
  Report Type: Other
  Country: US (occurrence: US)
  Receive Date: 20241025
  Receipt Date: 20241025
  Transmission Date: 20250115
  Serious: Yes (Other)
  Sender: YOUNGTECH PHARMACEUTICALS, INC
  Company Number: US-YoungTech Pharmaceuticals, Inc.-2163811

PATIENT
  Age: 76 Year
  Sex: Female

DRUGS (2)
  1. METOPROLOL TARTRATE [Suspect]
     Active Substance: METOPROLOL TARTRATE
     Indication: Product used for unknown indication
  2. LOSARTAN [Concomitant]
     Active Substance: LOSARTAN

REACTIONS (1)
  - BRASH syndrome [Recovering/Resolving]
